FAERS Safety Report 24916069 (Version 1)
Quarter: 2025Q1

REPORT INFORMATION
  Report Type: Spontaneous
  Country: US (occurrence: US)
  Receive Date: 20250203
  Receipt Date: 20250203
  Transmission Date: 20250408
  Serious: Yes (Other)
  Sender: PHARMACOSMOS A/S
  Company Number: US-NEBO-685000

PATIENT
  Age: 36 Year
  Sex: Female
  Weight: 74 kg

DRUGS (2)
  1. MONOFERRIC [Suspect]
     Active Substance: FERRIC DERISOMALTOSE
     Indication: Iron deficiency anaemia
     Dates: start: 20250114, end: 20250114
  2. MONOFERRIC [Suspect]
     Active Substance: FERRIC DERISOMALTOSE
     Indication: Iron deficiency anaemia
     Dates: start: 20250114, end: 20250114

REACTIONS (3)
  - Flushing [Recovered/Resolved]
  - Chest pain [Recovered/Resolved]
  - Maternal exposure during pregnancy [Recovered/Resolved]

NARRATIVE: CASE EVENT DATE: 20250114
